FAERS Safety Report 5143111-8 (Version None)
Quarter: 2006Q4

REPORT INFORMATION
  Report Type: 
  Country: None (occurrence: None)
  Receive Date: 20061103
  Receipt Date: 20060719
  Transmission Date: 20070319
  Serious: Yes (Life-Threatening, Disabling)
  Sender: FDA-Public Use
  Company Number: JP-BRISTOL-MYERS SQUIBB COMPANY-13456736

PATIENT
  Age: 27 Year
  Sex: Female

DRUGS (5)
  1. GATIFLO TABS [Suspect]
     Indication: UPPER RESPIRATORY TRACT INFLAMMATION
     Route: 048
     Dates: start: 20060714, end: 20060714
  2. GATIFLO TABS [Suspect]
     Indication: BRONCHITIS
     Route: 048
     Dates: start: 20060714, end: 20060714
  3. BRUFEN [Concomitant]
     Route: 048
     Dates: start: 20060714
  4. CLEANAL [Concomitant]
     Route: 048
     Dates: start: 20060714
  5. MEDICON [Concomitant]
     Route: 048
     Dates: start: 20060714

REACTIONS (2)
  - DRUG ERUPTION [None]
  - SHOCK [None]
